FAERS Safety Report 5481621-4 (Version None)
Quarter: 2007Q4

REPORT INFORMATION
  Report Type: 
  Country: None (occurrence: None)
  Receive Date: 20071010
  Receipt Date: 20071001
  Transmission Date: 20080405
  Serious: Yes (Hospitalization, Other)
  Sender: FDA-Public Use
  Company Number: US-ELI_LILLY_AND_COMPANY-US200707005456

PATIENT
  Sex: Female

DRUGS (3)
  1. FORTEO [Suspect]
     Indication: OSTEOPOROSIS
     Dates: start: 20060501
  2. BENICAR HCT [Concomitant]
  3. CALCIUM [Concomitant]

REACTIONS (3)
  - CONSTIPATION [None]
  - FALL [None]
  - FEMUR FRACTURE [None]
